FAERS Safety Report 23619238 (Version 1)
Quarter: 2024Q1

REPORT INFORMATION
  Report Type: Spontaneous
  Country: US (occurrence: US)
  Receive Date: 20240311
  Receipt Date: 20240311
  Transmission Date: 20240410
  Serious: No
  Sender: FDA-Public Use
  Company Number: US-BRISTOL-MYERS SQUIBB COMPANY-2024-038071

PATIENT
  Age: 62 Year
  Sex: Female

DRUGS (2)
  1. ORENCIA [Suspect]
     Active Substance: ABATACEPT
     Indication: Arthropathy
     Route: 058
     Dates: start: 202312
  2. CIMZIA [Concomitant]
     Active Substance: CERTOLIZUMAB PEGOL
     Dosage: PF SYR (2/BOX)

REACTIONS (7)
  - Urinary tract infection [Unknown]
  - Arthropathy [Unknown]
  - Sinus disorder [Unknown]
  - Respiratory disorder [Unknown]
  - Seasonal allergy [Unknown]
  - Off label use [Unknown]
  - Condition aggravated [Unknown]
